FAERS Safety Report 16802830 (Version 1)
Quarter: 2019Q3

REPORT INFORMATION
  Report Type: Spontaneous
  Country: US (occurrence: US)
  Receive Date: 20190913
  Receipt Date: 20190913
  Transmission Date: 20191005
  Serious: No
  Sender: FDA-Public Use
  Company Number: US-ELI_LILLY_AND_COMPANY-US201909005616

PATIENT
  Sex: Female

DRUGS (5)
  1. TRULICITY [Suspect]
     Active Substance: DULAGLUTIDE
     Indication: PRODUCT USED FOR UNKNOWN INDICATION
     Dosage: .75 MG, UNKNOWN
     Route: 058
     Dates: start: 201709
  2. METFORMIN [Suspect]
     Active Substance: METFORMIN HYDROCHLORIDE
     Indication: PRODUCT USED FOR UNKNOWN INDICATION
     Dosage: 500 MG, BID
     Route: 065
  3. TRULICITY [Suspect]
     Active Substance: DULAGLUTIDE
     Dosage: .75 MG, UNKNOWN
     Route: 058
     Dates: start: 201709
  4. TRULICITY [Suspect]
     Active Substance: DULAGLUTIDE
     Dosage: .75 MG, UNKNOWN
     Route: 058
     Dates: start: 201709
  5. TOUJEO [Suspect]
     Active Substance: INSULIN GLARGINE
     Indication: PRODUCT USED FOR UNKNOWN INDICATION
     Dosage: 20 INTERNATIONAL UNIT, DAILY
     Route: 065

REACTIONS (1)
  - Blood glucose increased [Unknown]
